FAERS Safety Report 24699992 (Version 2)
Quarter: 2025Q3

REPORT INFORMATION
  Report Type: Spontaneous
  Country: US (occurrence: US)
  Receive Date: 20241205
  Receipt Date: 20250816
  Transmission Date: 20251020
  Serious: No
  Sender: ALEXION PHARMACEUTICALS
  Company Number: US-AstraZeneca-CH-00752423A

PATIENT
  Sex: Male

DRUGS (4)
  1. KOSELUGO [Suspect]
     Active Substance: SELUMETINIB
     Indication: Neurofibromatosis
     Route: 065
  2. KOSELUGO [Suspect]
     Active Substance: SELUMETINIB
     Dosage: 20 MILLIGRAM, BID
     Route: 065
     Dates: start: 202109, end: 202306
  3. KOSELUGO [Suspect]
     Active Substance: SELUMETINIB
     Route: 065
  4. KOSELUGO [Suspect]
     Active Substance: SELUMETINIB
     Route: 065

REACTIONS (7)
  - Constipation [Unknown]
  - Dermatitis acneiform [Unknown]
  - Stomatitis [Unknown]
  - Alopecia [Unknown]
  - Hair colour changes [Unknown]
  - Myositis [Unknown]
  - Blood creatine phosphokinase increased [Unknown]
